FAERS Safety Report 20536348 (Version 1)
Quarter: 2022Q1

REPORT INFORMATION
  Report Type: Spontaneous
  Country: CA (occurrence: CA)
  Receive Date: 20220302
  Receipt Date: 20220302
  Transmission Date: 20220424
  Serious: Yes (Other)
  Sender: FDA-Public Use
  Company Number: CA-JNJFOC-20211143618

PATIENT
  Age: 39 Year
  Sex: Female
  Weight: 78 kg

DRUGS (1)
  1. REMICADE [Suspect]
     Active Substance: INFLIXIMAB
     Indication: Crohn^s disease
     Route: 042

REACTIONS (24)
  - Anxiety [Not Recovered/Not Resolved]
  - Dysphagia [Not Recovered/Not Resolved]
  - Feeling abnormal [Not Recovered/Not Resolved]
  - Hypoaesthesia [Not Recovered/Not Resolved]
  - Limb injury [Not Recovered/Not Resolved]
  - Oropharyngeal pain [Not Recovered/Not Resolved]
  - Paraesthesia [Not Recovered/Not Resolved]
  - Heart rate irregular [Not Recovered/Not Resolved]
  - Respiratory rate increased [Not Recovered/Not Resolved]
  - Somnolence [Not Recovered/Not Resolved]
  - Dyspnoea [Not Recovered/Not Resolved]
  - Chest pain [Not Recovered/Not Resolved]
  - Chest discomfort [Not Recovered/Not Resolved]
  - Blood pressure fluctuation [Not Recovered/Not Resolved]
  - Feeling hot [Not Recovered/Not Resolved]
  - Arthralgia [Not Recovered/Not Resolved]
  - Body temperature increased [Not Recovered/Not Resolved]
  - Chills [Not Recovered/Not Resolved]
  - Headache [Not Recovered/Not Resolved]
  - Fatigue [Not Recovered/Not Resolved]
  - Hyperhidrosis [Not Recovered/Not Resolved]
  - Myalgia [Not Recovered/Not Resolved]
  - Infusion related reaction [Not Recovered/Not Resolved]
  - Pain [Not Recovered/Not Resolved]
